FAERS Safety Report 9305645 (Version 2)
Quarter: 2013Q2

REPORT INFORMATION
  Report Type: Spontaneous
  Country: US (occurrence: US)
  Receive Date: 20130523
  Receipt Date: 20130612
  Transmission Date: 20140414
  Serious: Yes (Hospitalization)
  Sender: FDA-Public Use
  Company Number: US-PFIZER INC-2013155872

PATIENT
  Age: 46 Year
  Sex: Female
  Weight: 79.37 kg

DRUGS (1)
  1. DOXYCYCLINE HYCLATE [Suspect]
     Indication: EYE DISORDER
     Dosage: 100 MG, 2X/DAY
     Route: 048
     Dates: start: 20100511, end: 20100511

REACTIONS (2)
  - Malaise [Recovered/Resolved]
  - Pain [Recovered/Resolved]
